FAERS Safety Report 9261580 (Version 2)
Quarter: 2013Q2

REPORT INFORMATION
  Report Type: Spontaneous
  Country: BR (occurrence: BR)
  Receive Date: 20130429
  Receipt Date: 20130515
  Transmission Date: 20140414
  Serious: Yes (Other)
  Sender: FDA-Public Use
  Company Number: BR-PFIZER INC-2013127947

PATIENT
  Age: 50 Year
  Sex: Male
  Weight: 63.6 kg

DRUGS (2)
  1. PLATAMINE CS [Suspect]
     Indication: LUNG NEOPLASM MALIGNANT
     Dosage: AUC (AREA UNDER CURVE) 6, 846 MG, CYCLIC
     Route: 042
     Dates: start: 20130103, end: 20130418
  2. ALIMTA [Concomitant]
     Dosage: 883 MG, CYCLIC
     Dates: start: 20130103

REACTIONS (6)
  - Dyspnoea [Recovered/Resolved]
  - Tachycardia [Recovered/Resolved]
  - Rash [Recovered/Resolved]
  - Cyanosis [Recovered/Resolved]
  - Cyanosis [Recovered/Resolved]
  - Haemoglobin decreased [None]
